FAERS Safety Report 5330317-8 (Version None)
Quarter: 2007Q2

REPORT INFORMATION
  Report Type: 
  Country: None (occurrence: None)
  Receive Date: 20070521
  Receipt Date: 20070514
  Transmission Date: 20071010
  Serious: Yes (Death, Other)
  Sender: FDA-Public Use
  Company Number: GBWYE504620APR07

PATIENT
  Sex: Male
  Weight: 70 kg

DRUGS (15)
  1. TYGACIL [Suspect]
     Indication: ENTEROBACTER INFECTION
     Dosage: 100MG LOADING DOSE
     Route: 042
     Dates: start: 20070305, end: 20070305
  2. TYGACIL [Suspect]
     Indication: STAPHYLOCOCCAL INFECTION
     Route: 042
     Dates: start: 20070306, end: 20070307
  3. TYGACIL [Suspect]
     Route: 042
     Dates: start: 20070310, end: 20070321
  4. SIMVASTATIN [Suspect]
     Indication: BLOOD CHOLESTEROL INCREASED
     Route: 048
     Dates: end: 20070305
  5. ASPIRIN [Concomitant]
     Indication: CEREBROVASCULAR ACCIDENT
     Route: 048
     Dates: end: 20070321
  6. LANSOPRAZOLE [Concomitant]
     Route: 048
     Dates: end: 20070321
  7. CIPROFLOXACIN [Concomitant]
     Indication: PNEUMONIA ASPIRATION
     Route: 042
     Dates: start: 20070316, end: 20070321
  8. FRAGMIN [Concomitant]
     Indication: PROPHYLAXIS
     Dosage: 2500IU FREQUENCY UNKNOWN
     Route: 058
     Dates: start: 20070203
  9. QUININE SULFATE [Suspect]
     Indication: MUSCLE SPASMS
     Route: 048
     Dates: start: 20070216, end: 20070309
  10. CHLORPHENIRAMINE MALEATE [Suspect]
     Indication: ADVERSE DRUG REACTION
     Route: 048
     Dates: start: 20070228, end: 20070307
  11. MORPHINE SULFATE [Concomitant]
     Indication: PAIN
     Route: 048
     Dates: start: 20070302, end: 20070311
  12. MORPHINE SULFATE [Concomitant]
     Dosage: 10MG FREQUENCY UNKNOWN
     Route: 048
     Dates: start: 20070312
  13. AMOXICILLIN + CLAVULANATE POTASSIUM [Concomitant]
     Indication: LOWER RESPIRATORY TRACT INFECTION
     Route: 042
     Dates: start: 20070310, end: 20070313
  14. LEVOTHYROXINE SODIUM [Concomitant]
     Indication: THYROXINE FREE DECREASED
     Dosage: 50MICROGRAMS FREQUENCY UNKNOWN
     Route: 048
     Dates: start: 20070118
  15. FOLIC ACID [Concomitant]
     Indication: PERNICIOUS ANAEMIA
     Route: 048
     Dates: end: 20070321

REACTIONS (4)
  - ALANINE AMINOTRANSFERASE INCREASED [None]
  - BLOOD ALKALINE PHOSPHATASE INCREASED [None]
  - BLOOD BILIRUBIN INCREASED [None]
  - DEATH [None]
